FAERS Safety Report 14308136 (Version 1)
Quarter: 2017Q4

REPORT INFORMATION
  Report Type: Spontaneous
  Country: CN (occurrence: CN)
  Receive Date: 20171220
  Receipt Date: 20171220
  Transmission Date: 20180321
  Serious: Yes (Hospitalization, Other)
  Sender: FDA-Public Use
  Company Number: CN-BAYER-2017-229638

PATIENT
  Age: 78 Year
  Sex: Male

DRUGS (1)
  1. ACETYLSALICYLIC ACID({=100 MG) [Suspect]
     Active Substance: ASPIRIN
     Dosage: 5-6 YEARS

REACTIONS (3)
  - Cervical spinal cord paralysis [Recovered/Resolved]
  - Spinal epidural haematoma [Recovered/Resolved]
  - Hyponatraemia [Recovered/Resolved]
